FAERS Safety Report 9260612 (Version 2)
Quarter: 2013Q2

REPORT INFORMATION
  Report Type: Report from Study
  Country: FR (occurrence: FR)
  Receive Date: 20130429
  Receipt Date: 20130508
  Transmission Date: 20140414
  Serious: Yes (Congenital Anomaly)
  Sender: FDA-Public Use
  Company Number: FR-GILEAD-2013-0074194

PATIENT
  Sex: 0

DRUGS (3)
  1. EMTRICITABINE/TENOFOVIR DISOPROXIL FUMARATE [Suspect]
     Indication: HIV INFECTION
     Route: 064
  2. SUSTIVA [Suspect]
     Indication: HIV INFECTION
     Route: 064
  3. LOPINAVIR W/RITONAVIR [Suspect]
     Indication: HIV INFECTION
     Route: 064

REACTIONS (4)
  - Congenital hydrocephalus [Not Recovered/Not Resolved]
  - Bronchopulmonary dysplasia [Not Recovered/Not Resolved]
  - Congenital anomaly of adrenal gland [Not Recovered/Not Resolved]
  - Dysmorphism [Not Recovered/Not Resolved]
